FAERS Safety Report 22221290 (Version 5)
Quarter: 2024Q1

REPORT INFORMATION
  Report Type: Spontaneous
  Country: US (occurrence: US)
  Receive Date: 20230418
  Receipt Date: 20240329
  Transmission Date: 20240409
  Serious: Yes (Other)
  Sender: FDA-Public Use
  Company Number: US-BRISTOL-MYERS SQUIBB COMPANY-2023-051443

PATIENT
  Age: 76 Year
  Sex: Female

DRUGS (2)
  1. POMALYST [Suspect]
     Active Substance: POMALIDOMIDE
     Indication: Plasma cell myeloma
     Dosage: TAKE 1 CAPSULE BY MOUTH EVERY DAY ALSO ON 24-MAR-2023, FOR 21 DAYS THEN OFF FOR 7 DAYS FOR A 28
     Route: 048
     Dates: start: 20230324
  2. POMALYST [Suspect]
     Active Substance: POMALIDOMIDE
     Dosage: FREQUENCY: TAKE 1 CAPSULE BY MOUTH EVERY DAY ON DAYS 1-21 WITH 7 DAYS OFF FOR A 28 DAY CYCLE
     Route: 048
     Dates: start: 20230324

REACTIONS (7)
  - Rash pruritic [Recovered/Resolved]
  - Fatigue [Not Recovered/Not Resolved]
  - Erythema [Not Recovered/Not Resolved]
  - Pruritus [Not Recovered/Not Resolved]
  - Pain [Unknown]
  - Somnolence [Unknown]
  - White blood cell count decreased [Not Recovered/Not Resolved]
